FAERS Safety Report 9243228 (Version 2)
Quarter: 2013Q2

REPORT INFORMATION
  Report Type: Spontaneous
  Country: GB (occurrence: GB)
  Receive Date: 20130419
  Receipt Date: 20130513
  Transmission Date: 20140414
  Serious: Yes (Other)
  Sender: FDA-Public Use
  Company Number: GB-B.I. PHARMACEUTICALS,INC./RIDGEFIELD-2013-UK-00927UK

PATIENT
  Sex: Male
  Weight: 117 kg

DRUGS (5)
  1. PRADAXA [Suspect]
     Indication: ATRIAL FIBRILLATION
     Dosage: 220 MG
     Route: 048
     Dates: start: 20120614, end: 20130107
  2. GLICLAZIDE [Concomitant]
     Dosage: 160 MG
     Route: 048
  3. METFORMIN [Concomitant]
     Dosage: 500 MG
     Route: 048
  4. BYETTA [Concomitant]
     Route: 058
  5. OLMESARTAN [Concomitant]
     Dosage: 20 MG
     Route: 048

REACTIONS (8)
  - Haemorrhage [Recovered/Resolved]
  - Gastrointestinal angiodysplasia [Unknown]
  - Haemoglobin decreased [Unknown]
  - Malaise [Unknown]
  - Asthenia [Unknown]
  - Fatigue [Unknown]
  - Gait disturbance [Unknown]
  - Iron deficiency anaemia [Unknown]
